FAERS Safety Report 16347238 (Version 1)
Quarter: 2019Q3

REPORT INFORMATION
  Report Type: Spontaneous
  Country: US (occurrence: US)
  Receive Date: 20190522
  Receipt Date: 20190522
  Transmission Date: 20191004
  Serious: Yes (Life-Threatening, Hospitalization)
  Sender: FDA-Public Use
  Company Number: None

PATIENT
  Age: 57 Year
  Sex: Female
  Weight: 90.13 kg

DRUGS (14)
  1. EZETIMIBE 10 MG [Concomitant]
     Active Substance: EZETIMIBE
  2. FIORICET 50-325-40 MG [Concomitant]
  3. MAGNESIUM OXIDE 500 MG [Concomitant]
  4. ESOMEPRAZOLE 40 MG [Concomitant]
     Active Substance: ESOMEPRAZOLE
  5. TIZANIDINE 2 MG [Concomitant]
     Active Substance: TIZANIDINE
  6. ROSUVASTATIN 40 [Concomitant]
  7. REPATHA [Suspect]
     Active Substance: EVOLOCUMAB
     Indication: TYPE IIA HYPERLIPIDAEMIA
     Dosage: ?          OTHER FREQUENCY:EVERY OTHER WEEK;?
     Route: 058
     Dates: start: 20190423, end: 20190502
  8. ASPIRIN 81 MG [Concomitant]
     Active Substance: ASPIRIN
  9. FAMOTIDINE 20 MG [Concomitant]
     Active Substance: FAMOTIDINE
  10. HYDROXYZINE 25 MG [Concomitant]
  11. FEXOFENADINE 360 MG [Concomitant]
  12. PROMETHAZINE 25 MG [Concomitant]
  13. CETIRIZINE [Concomitant]
     Active Substance: CETIRIZINE HYDROCHLORIDE
  14. TRIAMTERENE-HCTZ 37.5-25 MG [Concomitant]
     Active Substance: HYDROCHLOROTHIAZIDE\TRIAMTERENE

REACTIONS (3)
  - Swelling [None]
  - Cold sweat [None]
  - Throat irritation [None]

NARRATIVE: CASE EVENT DATE: 20190502
